FAERS Safety Report 15586378 (Version 6)
Quarter: 2021Q1

REPORT INFORMATION
  Report Type: Spontaneous
  Country: US (occurrence: US)
  Receive Date: 20181105
  Receipt Date: 20210317
  Transmission Date: 20210419
  Serious: No
  Sender: FDA-Public Use
  Company Number: US-PFIZER INC-2017181557

PATIENT
  Age: 79 Year
  Sex: Female
  Weight: 82 kg

DRUGS (5)
  1. LYRICA [Suspect]
     Active Substance: PREGABALIN
     Indication: POLYNEUROPATHY
     Dosage: 200 MG, 1X/DAY (2 CAPSULES ONCE A DAY 90 DAYS)
     Route: 048
  2. LYRICA [Suspect]
     Active Substance: PREGABALIN
     Dosage: 100 MG, 1X/DAY (CUT HER OWN DOSE DOWN TO 100 MG)
     Route: 048
     Dates: start: 201810, end: 2018
  3. LYRICA [Suspect]
     Active Substance: PREGABALIN
     Dosage: 100 MG, 2X/DAY;(60 CAPSULE (SIXTY));(1 CAPSULE TWICE A DAY 30 DAYS)
     Route: 048
     Dates: end: 20181024
  4. OXYCODONE [Concomitant]
     Active Substance: OXYCODONE
     Indication: ANALGESIC THERAPY
     Dosage: UNK
  5. LYRICA [Suspect]
     Active Substance: PREGABALIN
     Indication: NEUROPATHY PERIPHERAL
     Dosage: 100 MG, 2X/DAY; (60 CAPSULE (SIXTY));(1 CAPSULE TWICE A DAY 30 DAYS)
     Route: 048

REACTIONS (3)
  - Intentional product use issue [Unknown]
  - Withdrawal syndrome [Unknown]
  - Pain in extremity [Recovered/Resolved]

NARRATIVE: CASE EVENT DATE: 201810
